FAERS Safety Report 6135332-2 (Version None)
Quarter: 2009Q1

REPORT INFORMATION
  Report Type: 
  Country: None (occurrence: None)
  Receive Date: 20090327
  Receipt Date: 20090202
  Transmission Date: 20090719
  Serious: No
  Sender: FDA-Public Use
  Company Number: US-BRISTOL-MYERS SQUIBB COMPANY-14490825

PATIENT
  Sex: Male

DRUGS (2)
  1. SPRYCEL [Suspect]
  2. ZOLOFT [Suspect]

REACTIONS (3)
  - MALAISE [None]
  - PARANOIA [None]
  - SPEECH DISORDER [None]
